FAERS Safety Report 6671018-3 (Version None)
Quarter: 2010Q2

REPORT INFORMATION
  Report Type: 
  Country: None (occurrence: None)
  Receive Date: 20100407
  Receipt Date: 20100330
  Transmission Date: 20101027
  Serious: Yes (Hospitalization)
  Sender: FDA-Public Use
  Company Number: PHEH2010US03326

PATIENT
  Sex: Female
  Weight: 67.12 kg

DRUGS (14)
  1. EXJADE [Suspect]
     Indication: MYELODYSPLASTIC SYNDROME
     Dosage: 1500 MG, QD
     Route: 048
     Dates: start: 20091218
  2. EXJADE [Suspect]
     Indication: MYELOFIBROSIS
     Dosage: 500 MG, UNK
     Dates: start: 20091201, end: 20100101
  3. NEULASTA [Concomitant]
  4. PREMARIN [Concomitant]
  5. CYANOCOBALAMIN [Concomitant]
  6. IMODIUM A-D [Concomitant]
  7. VIDAZA [Concomitant]
  8. PROCRIT                            /00909301/ [Concomitant]
  9. ACYCLOVIR [Concomitant]
  10. CIPRO [Concomitant]
  11. PROCHLORPERAZINE [Concomitant]
  12. CEPHALEXIN [Concomitant]
  13. FLUCONAZOLE [Concomitant]
  14. COMPAZINE [Concomitant]

REACTIONS (3)
  - DRUG INTOLERANCE [None]
  - INFECTION [None]
  - NAUSEA [None]
